FAERS Safety Report 15731815 (Version 1)
Quarter: 2018Q4

REPORT INFORMATION
  Report Type: Spontaneous
  Country: US (occurrence: US)
  Receive Date: 20181217
  Receipt Date: 20181217
  Transmission Date: 20190205
  Serious: Yes (Other)
  Sender: FDA-Public Use
  Company Number: None

PATIENT
  Age: 46 Year
  Sex: Female
  Weight: 54 kg

DRUGS (3)
  1. PERCOCET [Concomitant]
     Active Substance: ACETAMINOPHEN\OXYCODONE HYDROCHLORIDE
  2. TED^S PAIN GEL (UNSCENTED) [Suspect]
     Active Substance: TROLAMINE SALICYLATE
     Dates: start: 20181213, end: 20181213
  3. MOTRIN [Concomitant]
     Active Substance: IBUPROFEN

REACTIONS (2)
  - Product use complaint [None]
  - Application site burn [None]

NARRATIVE: CASE EVENT DATE: 20181213
